FAERS Safety Report 6368403-6 (Version None)
Quarter: 2009Q3

REPORT INFORMATION
  Report Type: 
  Country: None (occurrence: None)
  Receive Date: 20090922
  Receipt Date: 20090911
  Transmission Date: 20100115
  Serious: No
  Sender: FDA-Public Use
  Company Number: US-B.I. PHARMACEUTICALS,INC./RIDGEFIELD-2009-BP-10878BP

PATIENT
  Sex: Female

DRUGS (4)
  1. COMBIVENT [Suspect]
     Indication: CHRONIC OBSTRUCTIVE PULMONARY DISEASE
     Dosage: 6 PUF
     Route: 055
     Dates: start: 20030101
  2. LOVOXYL [Concomitant]
     Indication: THYROID DISORDER
  3. NEXIUM [Concomitant]
     Indication: ABDOMINAL DISCOMFORT
  4. XANAX [Concomitant]
     Indication: NERVOUSNESS

REACTIONS (4)
  - ACNE [None]
  - ALOPECIA [None]
  - PRURITUS [None]
  - SKIN DISORDER [None]
